FAERS Safety Report 5674562-0 (Version None)
Quarter: 2008Q1

REPORT INFORMATION
  Report Type: 
  Country: None (occurrence: None)
  Receive Date: 20080320
  Receipt Date: 20080318
  Transmission Date: 20080703
  Serious: Yes (Hospitalization)
  Sender: FDA-Public Use
  Company Number: JP-BAYER-200810345BYL

PATIENT
  Age: 68 Year
  Sex: Female
  Weight: 62 kg

DRUGS (8)
  1. ADALAT [Suspect]
     Indication: HYPERTENSION
     Dosage: TOTAL DAILY DOSE: 20 MG  UNIT DOSE: 20 MG
     Route: 048
     Dates: start: 20080111, end: 20080208
  2. INSULIN [Concomitant]
     Route: 042
  3. DIART [Concomitant]
     Indication: OEDEMA DUE TO RENAL DISEASE
     Dosage: TOTAL DAILY DOSE: 60 MG  UNIT DOSE: 30 MG
     Route: 048
     Dates: start: 20071101, end: 20080110
  4. DIART [Concomitant]
     Dosage: TOTAL DAILY DOSE: 60 MG  UNIT DOSE: 30 MG
     Route: 048
     Dates: start: 20080111
  5. ALDACTONE [Concomitant]
     Indication: OEDEMA DUE TO RENAL DISEASE
     Dosage: TOTAL DAILY DOSE: 50 MG  UNIT DOSE: 25 MG
     Route: 048
     Dates: start: 20050601, end: 20080110
  6. ALDACTONE [Concomitant]
     Route: 048
     Dates: start: 20080111
  7. CARDENALIN [Concomitant]
     Indication: HYPERTENSION
     Dosage: TOTAL DAILY DOSE: 6 MG  UNIT DOSE: 2 MG
     Route: 048
     Dates: start: 20040901
  8. AMLODIN OD [Concomitant]
     Indication: HYPERTENSION
     Dosage: TOTAL DAILY DOSE: 10 MG  UNIT DOSE: 5 MG
     Route: 048
     Dates: start: 19981001

REACTIONS (1)
  - RENAL FAILURE CHRONIC [None]
